FAERS Safety Report 5854019-4 (Version None)
Quarter: 2008Q3

REPORT INFORMATION
  Report Type: 
  Country: None (occurrence: None)
  Receive Date: 20080822
  Receipt Date: 20080303
  Transmission Date: 20090109
  Serious: No
  Sender: FDA-Public Use
  Company Number: US-BAYER-200815643NA

PATIENT

DRUGS (1)
  1. BETASERON [Suspect]

REACTIONS (1)
  - DEAFNESS [None]
